FAERS Safety Report 25869922 (Version 1)
Quarter: 2025Q4

REPORT INFORMATION
  Report Type: Spontaneous
  Country: US (occurrence: US)
  Receive Date: 20251001
  Receipt Date: 20251001
  Transmission Date: 20260118
  Serious: Yes (Death)
  Sender: MALLINCKRODT
  Company Number: US-MALLINCKRODT-MNK202505913

PATIENT
  Sex: Female

DRUGS (18)
  1. CORTICOTROPIN [Suspect]
     Active Substance: CORTICOTROPIN
     Indication: Rheumatoid arthritis
     Route: 058
  2. BACLOFEN [Concomitant]
     Active Substance: BACLOFEN
     Route: 048
  3. ACETAMINOPHEN\BUTALBITAL [Concomitant]
     Active Substance: ACETAMINOPHEN\BUTALBITAL
     Route: 048
  4. LOSARTAN POTASSIUM [Concomitant]
     Active Substance: LOSARTAN POTASSIUM
     Route: 048
  5. LEVOTHYROXINE [Concomitant]
     Active Substance: LEVOTHYROXINE
     Route: 048
  6. PREDNISONE [Concomitant]
     Active Substance: PREDNISONE
     Route: 048
  7. MYCOPHENOLATE MOFETIL [Concomitant]
     Active Substance: MYCOPHENOLATE MOFETIL
     Route: 048
  8. PROGESTERONE [Concomitant]
     Active Substance: PROGESTERONE
     Route: 048
  9. HYDROXYCHLOROQUINE SULFATE [Concomitant]
     Active Substance: HYDROXYCHLOROQUINE SULFATE
  10. SOLU-MEDROL [Concomitant]
     Active Substance: METHYLPREDNISOLONE SODIUM SUCCINATE
  11. TYLENOL [Concomitant]
     Active Substance: ACETAMINOPHEN
     Route: 048
  12. BENADRYL [Concomitant]
     Active Substance: DIPHENHYDRAMINE HYDROCHLORIDE
     Route: 042
  13. RITUXAN [Concomitant]
     Active Substance: RITUXIMAB
     Route: 042
  14. KETAMINE [Concomitant]
     Active Substance: KETAMINE
     Dosage: UNKNOWN
  15. LORAZEPAM [Concomitant]
     Active Substance: LORAZEPAM
     Route: 048
  16. PRASTERONE [Concomitant]
     Active Substance: PRASTERONE
     Route: 048
  17. ACETAMINOPHEN\HYDROCODONE [Concomitant]
     Active Substance: ACETAMINOPHEN\HYDROCODONE
     Route: 048
  18. PREGABALIN [Concomitant]
     Active Substance: PREGABALIN
     Route: 048

REACTIONS (1)
  - Death [Fatal]
